FAERS Safety Report 9961353 (Version 3)
Quarter: 2014Q2

REPORT INFORMATION
  Report Type: Report from Study
  Country: US (occurrence: US)
  Receive Date: 20140305
  Receipt Date: 20140423
  Transmission Date: 20141212
  Serious: Yes (Other)
  Sender: FDA-Public Use
  Company Number: US-JNJFOC-20140216747

PATIENT
  Age: 24 Year
  Sex: Male
  Weight: 104.33 kg

DRUGS (6)
  1. STELARA [Suspect]
     Indication: PSORIASIS
     Route: 058
     Dates: start: 201305, end: 2014
  2. ULTRACET [Concomitant]
     Indication: PAIN
     Dosage: 37.5-325MG
     Route: 048
  3. NAMENDA [Concomitant]
     Indication: PAIN
     Route: 065
  4. PHENERGAN [Concomitant]
     Indication: ABDOMINAL PAIN UPPER
     Route: 048
  5. ATENOLOL [Concomitant]
     Indication: CARDIAC DISORDER
     Route: 048
     Dates: start: 201401
  6. ATENOLOL [Concomitant]
     Indication: NERVOUS SYSTEM DISORDER
     Route: 048
     Dates: start: 201401

REACTIONS (2)
  - Systemic lupus erythematosus [Recovering/Resolving]
  - Epilepsy [Unknown]
